FAERS Safety Report 18198021 (Version 2)
Quarter: 2021Q2

REPORT INFORMATION
  Report Type: Spontaneous
  Country: US (occurrence: US)
  Receive Date: 20200826
  Receipt Date: 20210408
  Transmission Date: 20210717
  Serious: Yes (Other)
  Sender: FDA-Public Use
  Company Number: US-GILEAD-2020-0491862

PATIENT
  Age: 44 Year
  Sex: Male
  Weight: 81.63 kg

DRUGS (45)
  1. KALETRA [Concomitant]
     Active Substance: LOPINAVIR\RITONAVIR
  2. TRIUMEQ [Concomitant]
     Active Substance: ABACAVIR SULFATE\DOLUTEGRAVIR SODIUM\LAMIVUDINE
  3. ALPRAZOLAM. [Concomitant]
     Active Substance: ALPRAZOLAM
  4. FENOFIBRIC ACID. [Concomitant]
     Active Substance: FENOFIBRIC ACID
  5. FLUZONE [INFLUENZA VACCINE] [Concomitant]
  6. NALTREXONE [Concomitant]
     Active Substance: NALTREXONE
  7. PREDNISONE. [Concomitant]
     Active Substance: PREDNISONE
  8. VIREAD [Suspect]
     Active Substance: TENOFOVIR DISOPROXIL FUMARATE
     Indication: HIV INFECTION
     Dosage: UNK
     Route: 048
     Dates: start: 2004, end: 201801
  9. COMBIVIR [Concomitant]
     Active Substance: LAMIVUDINE\ZIDOVUDINE
  10. INVIRASE [Concomitant]
     Active Substance: SAQUINAVIR MESYLATE
  11. CEPHALEXIN [CEFALEXIN] [Concomitant]
     Active Substance: CEPHALEXIN
  12. CYCLOBENZAPRINE. [Concomitant]
     Active Substance: CYCLOBENZAPRINE
  13. GABAPENTIN. [Concomitant]
     Active Substance: GABAPENTIN
  14. HYDROCODONE/ACETAMINOPHEN [Concomitant]
     Active Substance: ACETAMINOPHEN\HYDROCODONE
  15. OXYCODONE [Concomitant]
     Active Substance: OXYCODONE
  16. PAROXETINE. [Concomitant]
     Active Substance: PAROXETINE
  17. TRUVADA [Suspect]
     Active Substance: EMTRICITABINE\TENOFOVIR DISOPROXIL FUMARATE
     Indication: HIV INFECTION
     Dosage: UNK
     Route: 048
     Dates: start: 2012, end: 201701
  18. ABACAVIR. [Concomitant]
     Active Substance: ABACAVIR
  19. ESCITALOPRAM [Concomitant]
     Active Substance: ESCITALOPRAM OXALATE
  20. KETOROLAC [Concomitant]
     Active Substance: KETOROLAC TROMETHAMINE
  21. TIVICAY [Concomitant]
     Active Substance: DOLUTEGRAVIR SODIUM
  22. DIAZEPAM. [Concomitant]
     Active Substance: DIAZEPAM
  23. LIVALO [Concomitant]
     Active Substance: PITAVASTATIN CALCIUM
  24. ONDANSETRON [Concomitant]
     Active Substance: ONDANSETRON
  25. ATRIPLA [Suspect]
     Active Substance: EFAVIRENZ\EMTRICITABINE\TENOFOVIR DISOPROXIL FUMARATE
     Indication: HIV INFECTION
     Dosage: UNK
     Route: 048
     Dates: start: 2004
  26. ZIAGEN [Concomitant]
     Active Substance: ABACAVIR SULFATE
  27. CHANTIX [Concomitant]
     Active Substance: VARENICLINE TARTRATE
  28. CITALOPRAM [Concomitant]
     Active Substance: CITALOPRAM HYDROBROMIDE
  29. FENOFIBRATE. [Concomitant]
     Active Substance: FENOFIBRATE
  30. SULFAMETHOXAZOLE [Concomitant]
     Active Substance: SULFAMETHOXAZOLE
  31. BIKTARVY [Concomitant]
     Active Substance: BICTEGRAVIR SODIUM\EMTRICITABINE\TENOFOVIR ALAFENAMIDE FUMARATE
  32. NORVIR [Concomitant]
     Active Substance: RITONAVIR
  33. IBUPROFEN. [Concomitant]
     Active Substance: IBUPROFEN
  34. TRAZODONE [Concomitant]
     Active Substance: TRAZODONE HYDROCHLORIDE
  35. REYATAZ [Concomitant]
     Active Substance: ATAZANAVIR SULFATE
  36. SUSTIVA [Concomitant]
     Active Substance: EFAVIRENZ
  37. VIDEX [Concomitant]
     Active Substance: DIDANOSINE
  38. CYANOCOBALAMIN. [Concomitant]
     Active Substance: CYANOCOBALAMIN
  39. DOXYCYCLINE. [Concomitant]
     Active Substance: DOXYCYCLINE
  40. CRIXIVAN [Concomitant]
     Active Substance: INDINAVIR SULFATE
  41. EPIVIR [Concomitant]
     Active Substance: LAMIVUDINE
  42. ZERIT [Concomitant]
     Active Substance: STAVUDINE
  43. BYSTOLIC [Concomitant]
     Active Substance: NEBIVOLOL HYDROCHLORIDE
  44. LOSARTAN POTASSIUM. [Concomitant]
     Active Substance: LOSARTAN POTASSIUM
  45. OXYCODONE AND ACETAMINOPHEN [Concomitant]
     Active Substance: ACETAMINOPHEN\OXYCODONE HYDROCHLORIDE

REACTIONS (12)
  - Osteopenia [Not Recovered/Not Resolved]
  - Anxiety [Unknown]
  - Loose tooth [Recovered/Resolved]
  - Dysstasia [Not Recovered/Not Resolved]
  - Bone loss [Recovered/Resolved]
  - Multiple fractures [Unknown]
  - Bone density decreased [Unknown]
  - Pain [Unknown]
  - Emotional distress [Unknown]
  - Anhedonia [Unknown]
  - Osteoporosis [Not Recovered/Not Resolved]
  - Stress fracture [Not Recovered/Not Resolved]

NARRATIVE: CASE EVENT DATE: 2015
